FAERS Safety Report 5072626-6 (Version None)
Quarter: 2006Q3

REPORT INFORMATION
  Report Type: 
  Country: None (occurrence: None)
  Receive Date: 20060807
  Receipt Date: 20060801
  Transmission Date: 20061208
  Serious: Yes (Death)
  Sender: FDA-Public Use
  Company Number: US-GLAXOSMITHKLINE-A0615175A

PATIENT
  Age: 36 Year
  Sex: Female

DRUGS (3)
  1. WELLBUTRIN [Suspect]
     Indication: DEPRESSION
     Route: 048
     Dates: end: 20000101
  2. LITHIUM [Suspect]
     Indication: DEPRESSION
     Route: 048
     Dates: start: 20000101, end: 20000101
  3. PROZAC [Suspect]
     Indication: DEPRESSION
     Route: 048
     Dates: end: 20000101

REACTIONS (8)
  - BLUNTED AFFECT [None]
  - COGNITIVE DISORDER [None]
  - COMPLETED SUICIDE [None]
  - DEPRESSED MOOD [None]
  - DEPRESSION [None]
  - JUDGEMENT IMPAIRED [None]
  - SUICIDAL IDEATION [None]
  - SUICIDE ATTEMPT [None]
